FAERS Safety Report 11599527 (Version 1)
Quarter: 2015Q3

REPORT INFORMATION
  Report Type: Spontaneous
  Country: US (occurrence: US)
  Receive Date: 20150916
  Receipt Date: 20150916
  Transmission Date: 20151125
  Serious: No
  Sender: FDA-Public Use
  Company Number: US-ELI_LILLY_AND_COMPANY-US200711004895

PATIENT
  Age: 61 Year
  Sex: Female

DRUGS (2)
  1. FORTEO [Suspect]
     Active Substance: TERIPARATIDE
     Indication: BONE DISORDER
     Dosage: UNK, UNK
     Dates: start: 200706, end: 20071118
  2. CORTISONE [Concomitant]
     Active Substance: CORTISONE\HYDROCORTISONE
     Route: 014
     Dates: start: 20071105

REACTIONS (7)
  - Alopecia [Not Recovered/Not Resolved]
  - Pain in extremity [Unknown]
  - Mobility decreased [Unknown]
  - Peripheral swelling [Unknown]
  - Arthropathy [Unknown]
  - Red blood cell count increased [Unknown]
  - Arthritis [Unknown]

NARRATIVE: CASE EVENT DATE: 2007
